FAERS Safety Report 10795372 (Version 1)
Quarter: 2015Q1

REPORT INFORMATION
  Report Type: Spontaneous
  Country: US (occurrence: US)
  Receive Date: 20150214
  Receipt Date: 20150214
  Transmission Date: 20150721
  Serious: No
  Sender: FDA-Public Use
  Company Number: US-GLAXOSMITHKLINE-A1063266A

PATIENT

DRUGS (3)
  1. VITAMINS [Concomitant]
     Active Substance: VITAMINS
  2. UNSPECIFIED MEDICATION [Suspect]
     Active Substance: UNSPECIFIED INGREDIENT
  3. NICODERM CQ [Suspect]
     Active Substance: NICOTINE
     Indication: EX-TOBACCO USER
     Dates: start: 201402, end: 20140227

REACTIONS (6)
  - Application site pain [Unknown]
  - Application site reaction [Unknown]
  - Application site rash [Not Recovered/Not Resolved]
  - Application site erythema [Unknown]
  - Drug interaction [Unknown]
  - Application site pruritus [Unknown]
